FAERS Safety Report 9449742 (Version 1)
Quarter: 2013Q3

REPORT INFORMATION
  Report Type: Report from Study
  Country: CZ (occurrence: CZ)
  Receive Date: 20130809
  Receipt Date: 20130809
  Transmission Date: 20140515
  Serious: Yes (Other)
  Sender: FDA-Public Use
  Company Number: CZ-JNJFOC-20130802287

PATIENT
  Age: 68 Year
  Sex: Male

DRUGS (8)
  1. SIMPONI [Suspect]
     Indication: PSORIATIC ARTHROPATHY
     Route: 058
     Dates: start: 20101104, end: 20130305
  2. ARTRILOM [Concomitant]
     Route: 065
  3. LEFLUNOMID [Concomitant]
     Route: 065
  4. PROTELOS [Concomitant]
     Route: 065
  5. CONTROLOC [Concomitant]
     Route: 065
  6. ISOPTIN [Concomitant]
     Dosage: STRENGTH: 240 MG
     Route: 065
  7. MIRTAZAPIN [Concomitant]
     Route: 065
  8. CALCICHEW D3 [Concomitant]
     Route: 065

REACTIONS (1)
  - Prostate cancer [Not Recovered/Not Resolved]
